FAERS Safety Report 7953622-5 (Version None)
Quarter: 2011Q4

REPORT INFORMATION
  Report Type: 
  Country: None (occurrence: None)
  Receive Date: 20111202
  Receipt Date: 20111121
  Transmission Date: 20120403
  Serious: Yes (Other)
  Sender: FDA-Public Use
  Company Number: US-ELI_LILLY_AND_COMPANY-US201111007092

PATIENT
  Age: 63 Year
  Sex: Male

DRUGS (6)
  1. HUMALOG MIX 75/25 [Suspect]
     Indication: TYPE 1 DIABETES MELLITUS
  2. HUMALOG [Suspect]
     Dosage: SLIDING SCALE
  3. HUMULIN 70/30 [Suspect]
     Indication: TYPE 1 DIABETES MELLITUS
     Dosage: 55 U, BID
     Dates: start: 20111021
  4. ORAL ANTIDIABETICS [Concomitant]
  5. NOVOLIN N [Concomitant]
  6. HUMALOG [Suspect]
     Indication: TYPE 1 DIABETES MELLITUS

REACTIONS (7)
  - RENAL DISORDER [None]
  - VISUAL FIELD DEFECT [None]
  - VISUAL ACUITY REDUCED [None]
  - BLINDNESS UNILATERAL [None]
  - ANIMAL BITE [None]
  - BLOOD GLUCOSE INCREASED [None]
  - EYE OPERATION [None]
